FAERS Safety Report 9053629 (Version 1)
Quarter: 2013Q1

REPORT INFORMATION
  Report Type: Spontaneous
  Country: US (occurrence: None)
  Receive Date: 20130201
  Receipt Date: 20130201
  Transmission Date: 20140127
  Serious: No
  Sender: FDA-Public Use
  Company Number: None

PATIENT
  Age: 47 Year
  Sex: Male
  Weight: 61.3 kg

DRUGS (1)
  1. HALDOL 5MG [Suspect]
     Route: 048
     Dates: start: 20120906, end: 20120910

REACTIONS (3)
  - Hallucination, auditory [None]
  - Depression [None]
  - Anxiety [None]
